FAERS Safety Report 7750179-9 (Version None)
Quarter: 2011Q3

REPORT INFORMATION
  Report Type: 
  Country: None (occurrence: None)
  Receive Date: 20110914
  Receipt Date: 20110914
  Transmission Date: 20111222
  Serious: Yes (Death, Life-Threatening, Other)
  Sender: FDA-Public Use
  Company Number: None

PATIENT
  Age: 34 Year
  Sex: Male
  Weight: 83.914 kg

DRUGS (1)
  1. VICODIN [Suspect]
     Indication: JOINT INJURY
     Dosage: 500MG
     Dates: start: 20110902, end: 20110902

REACTIONS (4)
  - FATIGUE [None]
  - PRODUCT QUALITY ISSUE [None]
  - DYSPNOEA [None]
  - ASPHYXIA [None]
